FAERS Safety Report 4379402-8 (Version None)
Quarter: 2004Q2

REPORT INFORMATION
  Report Type: 
  Country: None (occurrence: None)
  Receive Date: 20040610
  Receipt Date: 20031208
  Transmission Date: 20050107
  Serious: Yes (Hospitalization, Other)
  Sender: FDA-Public Use
  Company Number: KII-2003-0011037

PATIENT
  Age: 19 Year
  Sex: Male

DRUGS (3)
  1. MORPHINE SULFATE [Suspect]
  2. COCAINE (COCAINE) [Suspect]
  3. TETRAHYDROCANABINOL (TETRAHYDROCANNABINOL) [Suspect]

REACTIONS (19)
  - ABNORMAL BEHAVIOUR [None]
  - AGGRESSION [None]
  - AGITATION [None]
  - ALANINE AMINOTRANSFERASE INCREASED [None]
  - ASPARTATE AMINOTRANSFERASE INCREASED [None]
  - BLOOD CREATINE INCREASED [None]
  - BLOOD CREATINE PHOSPHOKINASE INCREASED [None]
  - BLOOD CREATINE PHOSPHOKINASE MB INCREASED [None]
  - BLOOD PRESSURE DIASTOLIC DECREASED [None]
  - CHROMATURIA [None]
  - COMA [None]
  - CSF GLUCOSE INCREASED [None]
  - HEART RATE INCREASED [None]
  - LETHARGY [None]
  - OVERDOSE [None]
  - PYREXIA [None]
  - RESPIRATORY RATE INCREASED [None]
  - SOMNOLENCE [None]
  - VOMITING [None]
